FAERS Safety Report 7315388-1 (Version None)
Quarter: 2011Q1

REPORT INFORMATION
  Report Type: 
  Country: None (occurrence: None)
  Receive Date: 20110225
  Receipt Date: 20110218
  Transmission Date: 20110831
  Serious: Yes (Hospitalization)
  Sender: FDA-Public Use
  Company Number: A0770313A

PATIENT
  Age: 43 Year
  Sex: Male
  Weight: 122.7 kg

DRUGS (13)
  1. HYDROCHLOROTHIAZIDE [Concomitant]
     Dates: start: 20050101
  2. FUROSEMIDE [Concomitant]
  3. NIFEDIPINE [Concomitant]
  4. AVANDIA [Suspect]
     Indication: DIABETES MELLITUS
     Dosage: 8MG PER DAY
     Route: 048
     Dates: start: 20051201, end: 20070201
  5. CLONIDINE [Concomitant]
  6. ACTOS [Concomitant]
  7. ENALAPRIL MALEATE [Concomitant]
  8. NORVASC [Concomitant]
  9. ASPIRIN [Concomitant]
  10. GLUCOPHAGE [Concomitant]
  11. BENICAR [Concomitant]
  12. AVANDAMET [Suspect]
     Indication: DIABETES MELLITUS
     Route: 048
     Dates: start: 20051101, end: 20051201
  13. METFORMIN HCL [Concomitant]

REACTIONS (2)
  - CARDIAC FAILURE CONGESTIVE [None]
  - CARDIOMEGALY [None]
